FAERS Safety Report 15759576 (Version 1)
Quarter: 2018Q4

REPORT INFORMATION
  Report Type: Report from Study
  Country: None (occurrence: NL)
  Receive Date: 20181226
  Receipt Date: 20181226
  Transmission Date: 20190205
  Serious: Yes (Hospitalization)
  Sender: FDA-Public Use
  Company Number: NL-ABBVIE-17K-114-1851025-00

PATIENT
  Sex: Female
  Weight: 69 kg

DRUGS (2)
  1. DUODOPA [Suspect]
     Active Substance: CARBIDOPA\LEVODOPA
     Dosage: MD 12 ML, CD 2.0ML/HR, ED 2.0 ML?USE OF PUMP: 16 HOURS ADMINISTRATION, 1 CASSETTE
     Route: 050
  2. DUODOPA [Suspect]
     Active Substance: CARBIDOPA\LEVODOPA
     Indication: PARKINSON^S DISEASE
     Dosage: MD 13, CD 2.2, ED 2.0
     Route: 050
     Dates: start: 20170109

REACTIONS (14)
  - Fibroma [Not Recovered/Not Resolved]
  - Drug ineffective [Recovered/Resolved]
  - Hyperthyroidism [Not Recovered/Not Resolved]
  - Weight decreased [Recovered/Resolved]
  - General physical health deterioration [Not Recovered/Not Resolved]
  - Pulmonary embolism [Recovered/Resolved]
  - Dyschezia [Recovered/Resolved]
  - Stoma site hypergranulation [Not Recovered/Not Resolved]
  - Freezing phenomenon [Not Recovered/Not Resolved]
  - Stoma site discharge [Not Recovered/Not Resolved]
  - Stoma site erythema [Recovered/Resolved]
  - Stoma site discharge [Recovered/Resolved]
  - Muscle rigidity [Not Recovered/Not Resolved]
  - Enuresis [Not Recovered/Not Resolved]

NARRATIVE: CASE EVENT DATE: 2017
